FAERS Safety Report 25498909 (Version 1)
Quarter: 2025Q3

REPORT INFORMATION
  Report Type: Spontaneous
  Country: BR (occurrence: BR)
  Receive Date: 20250701
  Receipt Date: 20250701
  Transmission Date: 20251021
  Serious: Yes (Hospitalization)
  Sender: BOEHRINGER INGELHEIM
  Company Number: BR-Komodo Health-a23aa000008UtiPAAS

PATIENT
  Sex: Female

DRUGS (1)
  1. SPIRIVA RESPIMAT [Suspect]
     Active Substance: TIOTROPIUM BROMIDE
     Indication: Product used for unknown indication
     Dosage: 3 PUFFS IN THE MORNING AND 3 PUFFS AT NIGHT
     Dates: start: 202506

REACTIONS (3)
  - Femur fracture [Unknown]
  - Intentional overdose [Unknown]
  - Fall [Unknown]

NARRATIVE: CASE EVENT DATE: 20250601
